FAERS Safety Report 18078235 (Version 1)
Quarter: 2020Q3

REPORT INFORMATION
  Report Type: Spontaneous
  Country: US (occurrence: US)
  Receive Date: 20200728
  Receipt Date: 20200728
  Transmission Date: 20201103
  Serious: Yes (Other)
  Sender: FDA-Public Use
  Company Number: US-ASTELLAS-2020US024462

PATIENT
  Sex: Female

DRUGS (3)
  1. VESICARE [Suspect]
     Active Substance: SOLIFENACIN SUCCINATE
     Indication: PRODUCT USED FOR UNKNOWN INDICATION
     Dosage: 10 MG, ONCE DAILY (AROUND 30?MAY?2020)
     Route: 065
     Dates: start: 20200530
  2. VESICARE [Suspect]
     Active Substance: SOLIFENACIN SUCCINATE
     Dosage: 10 MG, ONCE DAILY (AROUND 30?MAY?2020)
     Route: 065
  3. LASIX [Concomitant]
     Active Substance: FUROSEMIDE
     Indication: PRODUCT USED FOR UNKNOWN INDICATION
     Dosage: 25 MG, UNKNOWN FREQ. (FOR 20 YEARS)
     Route: 065

REACTIONS (7)
  - Angular cheilitis [Recovering/Resolving]
  - Dysgeusia [Unknown]
  - Ageusia [Unknown]
  - Hypoaesthesia oral [Unknown]
  - Lip swelling [Recovering/Resolving]
  - Swollen tongue [Unknown]
  - Dry mouth [Recovering/Resolving]
